FAERS Safety Report 4555732-1 (Version None)
Quarter: 2005Q1

REPORT INFORMATION
  Report Type: 
  Country: None (occurrence: None)
  Receive Date: 20050112
  Receipt Date: 20040421
  Transmission Date: 20050727
  Serious: Yes (Other)
  Sender: FDA-Public Use
  Company Number: 200417695BWH

PATIENT
  Age: 66 Year
  Sex: Male
  Weight: 58.9676 kg

DRUGS (6)
  1. CIPRO [Suspect]
     Indication: DIARRHOEA
     Dosage: 1000 MG, TOTAL DAILY, ORAL
     Route: 048
     Dates: start: 20040408, end: 20040415
  2. MULTI-VITAMIN [Concomitant]
  3. CALCIUM GLUCONATE [Concomitant]
  4. VIOXX [Concomitant]
  5. FAMOTIDINE [Concomitant]
  6. ASACOL [Concomitant]

REACTIONS (9)
  - ASTHENIA [None]
  - DEHYDRATION [None]
  - DIFFICULTY IN WALKING [None]
  - DYSPHONIA [None]
  - MUSCULOSKELETAL DISCOMFORT [None]
  - NECK PAIN [None]
  - OEDEMA PERIPHERAL [None]
  - PAIN IN EXTREMITY [None]
  - WEIGHT DECREASED [None]
